FAERS Safety Report 9566293 (Version 2)
Quarter: 2013Q4

REPORT INFORMATION
  Report Type: Spontaneous
  Country: US (occurrence: US)
  Receive Date: 20130930
  Receipt Date: 20131031
  Transmission Date: 20140711
  Serious: Yes (Death)
  Sender: FDA-Public Use
  Company Number: US-B.I. PHARMACEUTICALS,INC./RIDGEFIELD-2013-BI-30511BP

PATIENT
  Age: 48 Year
  Sex: Male

DRUGS (1)
  1. MICARDIS [Suspect]
     Dates: start: 201112

REACTIONS (1)
  - Death [Fatal]
